FAERS Safety Report 7820199-4 (Version None)
Quarter: 2011Q4

REPORT INFORMATION
  Report Type: 
  Country: None (occurrence: None)
  Receive Date: 20111013
  Receipt Date: 20110927
  Transmission Date: 20120403
  Serious: Yes (Death, Hospitalization)
  Sender: FDA-Public Use
  Company Number: PRED20110099

PATIENT
  Age: 65 Year
  Sex: Male

DRUGS (3)
  1. METHYLPREDNISOLONE [Suspect]
     Indication: PRURITUS GENERALISED
     Dosage: 40 MG,  , INTRAVENOUS
     Route: 042
  2. METHYLPREDNISOLONE [Suspect]
     Indication: ERYTHEMA
     Dosage: 40 MG,  , INTRAVENOUS
     Route: 042
  3. PREDNISONE [Suspect]
     Indication: ARTHRALGIA
     Dosage: 5 MG, 1 IN 1 D, ORAL   0.625 MG, 1 IN 1 D, ORAL
     Route: 048

REACTIONS (3)
  - TACHYCARDIA [None]
  - PYREXIA [None]
  - TOXIC EPIDERMAL NECROLYSIS [None]
